FAERS Safety Report 6829269-0 (Version None)
Quarter: 2010Q3

REPORT INFORMATION
  Report Type: 
  Country: None (occurrence: None)
  Receive Date: 20100709
  Receipt Date: 20070307
  Transmission Date: 20110219
  Serious: No
  Sender: FDA-Public Use
  Company Number: US-PFIZER INC-2007019454

PATIENT
  Sex: Female

DRUGS (5)
  1. CHANTIX [Suspect]
     Indication: SMOKING CESSATION THERAPY
     Dates: start: 20070217
  2. LOPID [Concomitant]
  3. TENORETIC 100 [Concomitant]
     Indication: HYPERTENSION
  4. VITAMINS [Concomitant]
  5. CALCIUM CARBONATE [Concomitant]

REACTIONS (1)
  - FATIGUE [None]
